FAERS Safety Report 6554446-6 (Version None)
Quarter: 2010Q1

REPORT INFORMATION
  Report Type: 
  Country: None (occurrence: None)
  Receive Date: 20100127
  Receipt Date: 20100116
  Transmission Date: 20100710
  Serious: Yes (Death, Life-Threatening, Other)
  Sender: FDA-Public Use
  Company Number: US-BAXTER-2010BH001551

PATIENT
  Sex: Female

DRUGS (9)
  1. HEPARIN SODIUM INJECTION [Suspect]
     Indication: ARTERIAL OCCLUSIVE DISEASE
     Route: 040
     Dates: start: 20071024
  2. HEPARIN SODIUM INJECTION [Suspect]
     Indication: PERIPHERAL ISCHAEMIA
     Route: 040
     Dates: start: 20071024
  3. HEPARIN SODIUM INJECTION [Suspect]
     Indication: THROMBECTOMY
     Route: 040
     Dates: start: 20071024
  4. HEPARIN SODIUM INJECTION [Suspect]
     Route: 041
     Dates: start: 20071024
  5. HEPARIN SODIUM INJECTION [Suspect]
     Route: 041
     Dates: start: 20071024
  6. HEPARIN SODIUM INJECTION [Suspect]
     Route: 041
     Dates: start: 20071024
  7. HEPARIN SODIUM INJECTION [Suspect]
     Route: 010
     Dates: start: 20071113
  8. HEPARIN SODIUM INJECTION [Suspect]
     Route: 010
     Dates: start: 20071113
  9. HEPARIN SODIUM INJECTION [Suspect]
     Route: 010
     Dates: start: 20071113

REACTIONS (6)
  - ACUTE RESPIRATORY FAILURE [None]
  - HYPOTENSION [None]
  - METABOLIC ACIDOSIS [None]
  - PLATELET COUNT DECREASED [None]
  - RENAL FAILURE ACUTE [None]
  - SEPSIS [None]
